FAERS Safety Report 7693373-8 (Version None)
Quarter: 2011Q3

REPORT INFORMATION
  Report Type: 
  Country: None (occurrence: None)
  Receive Date: 20110819
  Receipt Date: 20110805
  Transmission Date: 20111222
  Serious: Yes (Hospitalization, Other)
  Sender: FDA-Public Use
  Company Number: JP-ELI_LILLY_AND_COMPANY-JP201103004709

PATIENT
  Age: 71 Year
  Sex: Male
  Weight: 44 kg

DRUGS (4)
  1. GEMZAR [Suspect]
     Dosage: 1000 MG, OTHER
     Route: 042
     Dates: start: 20090101
  2. GEMZAR [Suspect]
     Dosage: UNK, OTHER
     Dates: start: 20090101, end: 20090101
  3. TS 1 [Concomitant]
     Indication: PANCREATIC CARCINOMA NON-RESECTABLE
     Dosage: 80MG, OTHER
     Route: 048
     Dates: start: 20100101
  4. GEMZAR [Suspect]
     Indication: PANCREATIC CARCINOMA NON-RESECTABLE
     Dosage: 600 MG, OTHER
     Route: 042
     Dates: start: 20081201, end: 20090101

REACTIONS (5)
  - DUODENAL STENOSIS [None]
  - NEOPLASM PROGRESSION [None]
  - HYDRONEPHROSIS [None]
  - ANAEMIA [None]
  - NEUTROPHIL COUNT DECREASED [None]
